FAERS Safety Report 6611785-8 (Version None)
Quarter: 2010Q1

REPORT INFORMATION
  Report Type: 
  Country: None (occurrence: None)
  Receive Date: 20100301
  Receipt Date: 20100301
  Transmission Date: 20100710
  Serious: No
  Sender: FDA-Public Use
  Company Number: None

PATIENT
  Age: 19 Year
  Sex: Female
  Weight: 49.8957 kg

DRUGS (1)
  1. LEVAQUIN [Suspect]
     Indication: PHARYNGITIS STREPTOCOCCAL
     Dosage: 500MG 1 EVERY 24 HRS PO
     Route: 048
     Dates: start: 20100226, end: 20100227

REACTIONS (8)
  - CONFUSIONAL STATE [None]
  - CONVULSION [None]
  - CRYING [None]
  - FEAR [None]
  - MEMORY IMPAIRMENT [None]
  - MUSCULAR WEAKNESS [None]
  - PALPITATIONS [None]
  - TREMOR [None]
